FAERS Safety Report 9128924 (Version 1)
Quarter: 2013Q1

REPORT INFORMATION
  Report Type: Spontaneous
  Country: US (occurrence: US)
  Receive Date: 20130228
  Receipt Date: 20130228
  Transmission Date: 20140127
  Serious: No
  Sender: FDA-Public Use
  Company Number: US-ABBOTT-12P-163-1016952-00

PATIENT
  Age: 67 Year
  Sex: Male
  Weight: 133.93 kg

DRUGS (7)
  1. ANDROGEL [Suspect]
     Indication: BLOOD TESTOSTERONE DECREASED
     Dosage: 3 PUMP ACTUATIONS PER DAY.
     Dates: start: 201206
  2. APIDRA [Concomitant]
     Indication: DIABETES MELLITUS
     Dosage: 7.5 UNITS PER HOUR
  3. LEVOTHYROXINE [Concomitant]
     Indication: HORMONE REPLACEMENT THERAPY
  4. QUINAPRIL [Concomitant]
     Indication: PRODUCT USED FOR UNKNOWN INDICATION
  5. METOPROLOL [Concomitant]
     Indication: CARDIAC DISORDER
  6. GABAPENTIN [Concomitant]
     Indication: RESTLESS LEGS SYNDROME
  7. LIPITOR [Concomitant]
     Indication: BLOOD CHOLESTEROL INCREASED

REACTIONS (1)
  - Hair growth abnormal [Not Recovered/Not Resolved]
